FAERS Safety Report 23598564 (Version 1)
Quarter: 2024Q1

REPORT INFORMATION
  Report Type: Spontaneous
  Country: JP (occurrence: JP)
  Receive Date: 20240306
  Receipt Date: 20240306
  Transmission Date: 20240409
  Serious: Yes (Hospitalization, Other)
  Sender: FDA-Public Use
  Company Number: JP-TAKEDA-2024TJP003309

PATIENT
  Age: 8 Year
  Sex: Female

DRUGS (1)
  1. ENTYVIO [Suspect]
     Active Substance: VEDOLIZUMAB
     Indication: Behcet^s syndrome
     Dosage: UNK
     Route: 041

REACTIONS (5)
  - Gastrointestinal ulcer [Unknown]
  - Gastrointestinal perforation [Unknown]
  - Therapeutic product effect incomplete [Recovered/Resolved]
  - Product administered to patient of inappropriate age [Recovered/Resolved]
  - Off label use [Recovered/Resolved]
